FAERS Safety Report 5721162-X (Version None)
Quarter: 2008Q2

REPORT INFORMATION
  Report Type: 
  Country: None (occurrence: None)
  Receive Date: 20080424
  Receipt Date: 20080415
  Transmission Date: 20081010
  Serious: Yes (Hospitalization)
  Sender: FDA-Public Use
  Company Number: CERZ-1000189

PATIENT
  Age: 23 Year
  Sex: Male
  Weight: 44 kg

DRUGS (1)
  1. CEREZYME [Suspect]
     Indication: GAUCHER'S DISEASE
     Dosage: 59 U/KG, Q2W, INTRAVENOUS
     Route: 042

REACTIONS (1)
  - PERITONITIS BACTERIAL [None]
